FAERS Safety Report 21228297 (Version 1)
Quarter: 2022Q3

REPORT INFORMATION
  Report Type: Spontaneous
  Country: US (occurrence: US)
  Receive Date: 20220818
  Receipt Date: 20220818
  Transmission Date: 20221027
  Serious: No
  Sender: FDA-Public Use
  Company Number: US-PFIZER INC-202201060797

PATIENT
  Age: 65 Year
  Sex: Female
  Weight: 62.6 kg

DRUGS (1)
  1. LIOTHYRONINE SODIUM [Suspect]
     Active Substance: LIOTHYRONINE SODIUM
     Dosage: UNK

REACTIONS (7)
  - Drug ineffective [Unknown]
  - Malaise [Unknown]
  - Asthenia [Unknown]
  - Tri-iodothyronine increased [Unknown]
  - Paradoxical drug reaction [Unknown]
  - Hyperhidrosis [Unknown]
  - Weight increased [Unknown]
